FAERS Safety Report 4924721-7 (Version None)
Quarter: 2006Q1

REPORT INFORMATION
  Report Type: 
  Country: None (occurrence: None)
  Receive Date: 20060222
  Receipt Date: 20060214
  Transmission Date: 20060701
  Serious: Yes (Hospitalization)
  Sender: FDA-Public Use
  Company Number: OSCN-PR-0602S-0036

PATIENT
  Age: 75 Year
  Sex: Female

DRUGS (2)
  1. OMNISCAN [Suspect]
     Indication: NECK PAIN
     Dosage: 5 ML, SINGLE DOSE, EPIDURAL
     Route: 008
     Dates: start: 20060117, end: 20060117
  2. METHYLPREDNISOLONE ACETATE             (DEPO-MEDROL) [Concomitant]

REACTIONS (10)
  - AGGRESSION [None]
  - AMNESIA [None]
  - BRAIN SCAN ABNORMAL [None]
  - CONFUSIONAL STATE [None]
  - CONVULSION [None]
  - HEADACHE [None]
  - LOSS OF CONSCIOUSNESS [None]
  - POST PROCEDURAL VOMITING [None]
  - VENTRICULAR TACHYCARDIA [None]
  - VOMITING [None]
